FAERS Safety Report 5455495-1 (Version None)
Quarter: 2007Q3

REPORT INFORMATION
  Report Type: 
  Country: None (occurrence: None)
  Receive Date: 20070918
  Receipt Date: 20070702
  Transmission Date: 20080115
  Serious: Yes (Other)
  Sender: FDA-Public Use
  Company Number: US-ASTRAZENECA-2006UW21354

PATIENT
  Sex: Female

DRUGS (7)
  1. SEROQUEL [Suspect]
     Indication: BIPOLAR DISORDER
     Route: 048
  2. SEROQUEL [Suspect]
     Indication: SCHIZOPHRENIA
     Route: 048
  3. CLOZARIL [Concomitant]
  4. RISPERDAL [Concomitant]
  5. SOLIAN [Concomitant]
  6. TEMAZEPAN [Concomitant]
     Dosage: 30 MG, 2 MG
  7. BENZTROPIN [Concomitant]
     Dosage: 30 MG, 2 MG

REACTIONS (2)
  - DIABETES MELLITUS [None]
  - DIABETIC COMA [None]
